FAERS Safety Report 4294470-X (Version None)
Quarter: 2004Q1

REPORT INFORMATION
  Report Type: 
  Country: None (occurrence: None)
  Receive Date: 20040211
  Receipt Date: 20040130
  Transmission Date: 20041129
  Serious: Yes (Other)
  Sender: FDA-Public Use
  Company Number: US-JNJFOC-20040200114

PATIENT
  Age: 56 Year
  Sex: Female
  Weight: 86.1834 kg

DRUGS (11)
  1. REMICADE [Suspect]
     Indication: RHEUMATOID ARTHRITIS
     Dosage: 3 VIALS
     Dates: start: 20031212
  2. SYNTHROID [Concomitant]
  3. XANAX [Concomitant]
  4. PRILOSEC [Concomitant]
  5. ANEXIA (VICODIN) [Concomitant]
  6. GLUCOPHAGE [Concomitant]
  7. CELEBREX [Concomitant]
  8. THEO-DUR [Concomitant]
  9. PRED (PREDNISOLONE ACETATE) [Concomitant]
  10. MICRO K (POTASSIUM CHLORIDE) [Concomitant]
  11. HYDRODIURIL [Concomitant]

REACTIONS (6)
  - CAROTID ARTERY STENOSIS [None]
  - CEREBRAL ATROPHY [None]
  - CONVULSION [None]
  - DIZZINESS [None]
  - ELECTROCARDIOGRAM ST SEGMENT ABNORMAL [None]
  - GAIT DISTURBANCE [None]
